FAERS Safety Report 24004531 (Version 1)
Quarter: 2024Q2

REPORT INFORMATION
  Report Type: Spontaneous
  Country: US (occurrence: None)
  Receive Date: 20240621
  Receipt Date: 20240621
  Transmission Date: 20240716
  Serious: Yes (Hospitalization)
  Sender: FDA-Public Use
  Company Number: None

PATIENT
  Age: 81 Year
  Sex: Female

DRUGS (17)
  1. AMBRISENTAN [Suspect]
     Active Substance: AMBRISENTAN
  2. ALVESCO HFA [Concomitant]
  3. TYLENOL [Concomitant]
  4. ALBUTEROL HFA [Concomitant]
  5. TADALAFIL [Concomitant]
     Active Substance: TADALAFIL
  6. TORSEMIDE [Concomitant]
     Active Substance: TORSEMIDE
  7. POTASSIUM CHLORIDE [Concomitant]
  8. FAMOTIDINE [Concomitant]
     Active Substance: FAMOTIDINE
  9. METOPROLOL [Concomitant]
     Active Substance: METOPROLOL
  10. NORCO [Concomitant]
  11. CALCIUM CARBONATE [Concomitant]
  12. ROPINIROLE [Concomitant]
  13. Aspirin [Concomitant]
  14. VITAMIN B12 [Concomitant]
     Active Substance: CYANOCOBALAMIN
  15. CLOPIDOGREL [Concomitant]
     Active Substance: CLOPIDOGREL BISULFATE
  16. Latanoprost opht drop [Concomitant]
  17. ATORVASTATIN [Concomitant]

REACTIONS (5)
  - Peripheral swelling [None]
  - Weight increased [None]
  - Hypervolaemia [None]
  - Blood creatine abnormal [None]
  - Cardiac failure congestive [None]

NARRATIVE: CASE EVENT DATE: 20240604
